FAERS Safety Report 6289533-3 (Version None)
Quarter: 2009Q3

REPORT INFORMATION
  Report Type: 
  Country: None (occurrence: None)
  Receive Date: 20090730
  Receipt Date: 20090629
  Transmission Date: 20100115
  Serious: No
  Sender: FDA-Public Use
  Company Number: US-BAYER-200925284NA

PATIENT
  Age: 38 Year
  Sex: Female
  Weight: 100 kg

DRUGS (5)
  1. MIRENA [Suspect]
     Indication: ADENOMYOSIS
     Route: 015
     Dates: start: 20090622
  2. PRILOSEC [Concomitant]
  3. HTZ [Concomitant]
     Indication: DRUG USE FOR UNKNOWN INDICATION
  4. MOTRIN [Concomitant]
  5. TYLENOL (CAPLET) [Concomitant]

REACTIONS (6)
  - DIZZINESS [None]
  - HEADACHE [None]
  - MENSTRUAL DISORDER [None]
  - METRORRHAGIA [None]
  - PAIN [None]
  - TREMOR [None]
